FAERS Safety Report 8473905-2 (Version None)
Quarter: 2012Q2

REPORT INFORMATION
  Report Type: 
  Country: None (occurrence: None)
  Receive Date: 20120628
  Receipt Date: 20120208
  Transmission Date: 20120825
  Serious: Yes (Other)
  Sender: FDA-Public Use
  Company Number: US-MYLANLABS-2012S1001791

PATIENT
  Age: 43 Year
  Sex: Male
  Weight: 67.13 kg

DRUGS (5)
  1. ALPRAZOLAM [Concomitant]
     Route: 048
  2. CLOZAPINE [Suspect]
     Indication: PSYCHOTIC DISORDER
     Route: 048
     Dates: end: 20120120
  3. CLOZAPINE [Suspect]
     Indication: SCHIZOPHRENIA
     Route: 048
     Dates: end: 20120120
  4. ZYPREXA [Concomitant]
     Route: 048
  5. CHEMOTHERAPEUTICS [Concomitant]
     Dates: start: 20111201

REACTIONS (2)
  - LEUKOPENIA [None]
  - GRANULOCYTOPENIA [None]
